FAERS Safety Report 16955953 (Version 1)
Quarter: 2019Q4

REPORT INFORMATION
  Report Type: Spontaneous
  Country: TH (occurrence: TH)
  Receive Date: 20191024
  Receipt Date: 20191024
  Transmission Date: 20200122
  Serious: Yes (Hospitalization)
  Sender: FDA-Public Use
  Company Number: NVSC2019TH011981

PATIENT
  Age: 47 Year
  Sex: Male

DRUGS (4)
  1. IMIPENEM [Suspect]
     Active Substance: IMIPENEM
     Indication: PEMPHIGUS
     Dosage: 500 MG, Q6H
     Route: 042
  2. PREDNISOLONE. [Suspect]
     Active Substance: PREDNISOLONE
     Indication: PEMPHIGUS
     Dosage: UNK
     Route: 048
  3. CLOXACILLIN [Suspect]
     Active Substance: CLOXACILLIN
     Indication: PEMPHIGUS
     Dosage: 1 G, Q6H
     Route: 042
  4. DEXAMETHASONE. [Suspect]
     Active Substance: DEXAMETHASONE
     Indication: PEMPHIGUS
     Dosage: 5 MG, Q6H
     Route: 042

REACTIONS (8)
  - Eye pain [Recovered/Resolved with Sequelae]
  - Vision blurred [Recovered/Resolved with Sequelae]
  - Pain [Recovered/Resolved with Sequelae]
  - Swelling of eyelid [Recovered/Resolved with Sequelae]
  - Panophthalmitis [Recovered/Resolved with Sequelae]
  - Erythema [Recovered/Resolved with Sequelae]
  - Aeromonas infection [Recovered/Resolved with Sequelae]
  - Drug ineffective [Unknown]
